FAERS Safety Report 5451671-2 (Version None)
Quarter: 2007Q3

REPORT INFORMATION
  Report Type: 
  Country: None (occurrence: None)
  Receive Date: 20070913
  Receipt Date: 20070906
  Transmission Date: 20080115
  Serious: Yes (Other)
  Sender: FDA-Public Use
  Company Number: US-PFIZER INC-2007075109

PATIENT
  Sex: Female
  Weight: 80 kg

DRUGS (2)
  1. LIPITOR [Suspect]
     Indication: BLOOD CHOLESTEROL
  2. VITAMINS [Concomitant]

REACTIONS (4)
  - ARTHRALGIA [None]
  - PAIN [None]
  - POOR QUALITY DRUG ADMINISTERED [None]
  - WALKING AID USER [None]
